FAERS Safety Report 9637363 (Version 1)
Quarter: 2013Q4

REPORT INFORMATION
  Report Type: Spontaneous
  Country: AU (occurrence: AU)
  Receive Date: 20131022
  Receipt Date: 20131022
  Transmission Date: 20140711
  Serious: Yes (Other)
  Sender: FDA-Public Use
  Company Number: PHHY2013AU117165

PATIENT
  Sex: Male

DRUGS (2)
  1. TEGRETOL [Suspect]
     Indication: CONVULSION
     Dosage: 200 MG, TID
     Route: 048
  2. AVAPRO [Suspect]
     Indication: CONVULSION
     Dosage: 300 MG, QD
     Route: 048

REACTIONS (1)
  - Deafness bilateral [Unknown]
